FAERS Safety Report 18040689 (Version 1)
Quarter: 2020Q3

REPORT INFORMATION
  Report Type: Spontaneous
  Country: US (occurrence: US)
  Receive Date: 20200717
  Receipt Date: 20200717
  Transmission Date: 20201103
  Serious: No
  Sender: FDA-Public Use
  Company Number: NVSC2020US201297

PATIENT
  Sex: Male

DRUGS (1)
  1. MEKINIST [Suspect]
     Active Substance: TRAMETINIB DIMETHYL SULFOXIDE
     Indication: HISTIOCYTOSIS
     Dosage: 1 MG, QD
     Route: 048
     Dates: start: 20200616

REACTIONS (3)
  - Abdominal pain upper [Unknown]
  - Acne [Unknown]
  - Product use in unapproved indication [Unknown]
